FAERS Safety Report 9005915 (Version 2)
Quarter: 2013Q1

REPORT INFORMATION
  Report Type: Spontaneous
  Country: US (occurrence: US)
  Receive Date: 20130109
  Receipt Date: 20130208
  Transmission Date: 20140127
  Serious: No
  Sender: FDA-Public Use
  Company Number: US-BAYER-2013-002320

PATIENT
  Age: 39 Year
  Sex: Female
  Weight: 66 kg

DRUGS (3)
  1. ALEVE CAPLET/TABLET,MIDOL EXTENDED RELIEF CAPLET [Suspect]
     Route: 048
  2. SYNTHROID [Concomitant]
  3. ESTRADIOL [ESTRADIOL] [Concomitant]

REACTIONS (5)
  - Wrong technique in drug usage process [None]
  - Oral discomfort [Recovering/Resolving]
  - Oesophageal pain [Not Recovered/Not Resolved]
  - Pharyngeal inflammation [Recovering/Resolving]
  - Dysphonia [Not Recovered/Not Resolved]
